FAERS Safety Report 5404511-1 (Version None)
Quarter: 2007Q3

REPORT INFORMATION
  Report Type: 
  Country: None (occurrence: None)
  Receive Date: 20070802
  Receipt Date: 20070724
  Transmission Date: 20080115
  Serious: Yes (Hospitalization)
  Sender: FDA-Public Use
  Company Number: RU-SHR-RU-2007-022499

PATIENT
  Age: 24 Year
  Sex: Male

DRUGS (2)
  1. BETASERON [Suspect]
     Indication: RELAPSING-REMITTING MULTIPLE SCLEROSIS
     Dosage: 8 MIU, EVERY 2D
     Route: 058
     Dates: start: 20040101
  2. ANAESTHETICS FOR TOPICAL USE [Concomitant]

REACTIONS (3)
  - GASTRITIS HYPERTROPHIC [None]
  - GLOMERULONEPHRITIS ACUTE [None]
  - NEPHROTIC SYNDROME [None]
